FAERS Safety Report 8555328-0 (Version None)
Quarter: 2012Q3

REPORT INFORMATION
  Report Type: 
  Country: None (occurrence: None)
  Receive Date: 20120731
  Receipt Date: 20111018
  Transmission Date: 20120928
  Serious: No
  Sender: FDA-Public Use
  Company Number: US-ASTRAZENECA-2011SE38324

PATIENT
  Age: 35 Year
  Sex: Female
  Weight: 63.5 kg

DRUGS (5)
  1. TRAZODONE HYDROCHLORIDE [Concomitant]
  2. CYMBALTA [Concomitant]
  3. SEROQUEL XR [Suspect]
     Route: 048
     Dates: start: 20100101, end: 20110501
  4. CELEXA [Concomitant]
  5. XANAX [Concomitant]

REACTIONS (5)
  - NAUSEA [None]
  - TREMOR [None]
  - DRUG DOSE OMISSION [None]
  - WITHDRAWAL SYNDROME [None]
  - DIZZINESS [None]
